FAERS Safety Report 7137222-5 (Version None)
Quarter: 2010Q4

REPORT INFORMATION
  Report Type: 
  Country: None (occurrence: None)
  Receive Date: 20101119
  Receipt Date: 20100301
  Transmission Date: 20110411
  Serious: Yes (Disabling, Other)
  Sender: FDA-Public Use
  Company Number: APP201000272

PATIENT
  Sex: Male

DRUGS (4)
  1. HEPARIN SODIUM INJECTION [Suspect]
     Indication: CATHETERISATION CARDIAC
     Dosage: 5000IU; INTRAVENOUS DRIP
     Route: 041
     Dates: start: 20080122
  2. HEPARIN SODIUM INJECTION [Suspect]
     Indication: CORONARY ARTERY BYPASS
     Dosage: 5000IU; INTRAVENOUS DRIP
     Route: 041
     Dates: start: 20080122
  3. HEPARIN SODIUM INJECTION [Suspect]
     Indication: CATHETERISATION CARDIAC
     Dosage: 5000IU; INTRAVENOUS DRIP
     Route: 041
     Dates: start: 20080213
  4. HEPARIN SODIUM INJECTION [Suspect]
     Indication: CORONARY ARTERY BYPASS
     Dosage: 5000IU; INTRAVENOUS DRIP
     Route: 041
     Dates: start: 20080213

REACTIONS (13)
  - ATRIAL FIBRILLATION [None]
  - DEEP VEIN THROMBOSIS [None]
  - EXTREMITY NECROSIS [None]
  - GANGRENE [None]
  - HEPARIN-INDUCED THROMBOCYTOPENIA [None]
  - INFECTION [None]
  - LEG AMPUTATION [None]
  - OEDEMA [None]
  - PAIN [None]
  - PERIPHERAL ISCHAEMIA [None]
  - SKIN DISCOLOURATION [None]
  - THROMBOSIS [None]
  - TOE AMPUTATION [None]
